FAERS Safety Report 10163422 (Version 1)
Quarter: 2014Q2

REPORT INFORMATION
  Report Type: Spontaneous
  Country: US (occurrence: US)
  Receive Date: 20140509
  Receipt Date: 20140509
  Transmission Date: 20141212
  Serious: No
  Sender: FDA-Public Use
  Company Number: US-TEVA-480960USA

PATIENT
  Age: 17 Year
  Sex: Female
  Weight: 63.56 kg

DRUGS (1)
  1. PLAN B ONE-STEP [Suspect]
     Indication: POST COITAL CONTRACEPTION
     Dosage: 3 MILLIGRAM DAILY;
     Route: 048
     Dates: start: 20140418, end: 20140418

REACTIONS (3)
  - Headache [Recovered/Resolved]
  - Pelvic pain [Recovered/Resolved]
  - Inappropriate schedule of drug administration [Unknown]
